FAERS Safety Report 7295367-3 (Version None)
Quarter: 2011Q1

REPORT INFORMATION
  Report Type: 
  Country: None (occurrence: None)
  Receive Date: 20110216
  Receipt Date: 20110125
  Transmission Date: 20110831
  Serious: No
  Sender: FDA-Public Use
  Company Number: US-B.I. PHARMACEUTICALS,INC./RIDGEFIELD-2011-BP-02694BP

PATIENT
  Age: 53 Year
  Sex: Female

DRUGS (4)
  1. HYDROMET SYRUP [Concomitant]
     Indication: PNEUMONIA
     Route: 048
     Dates: start: 20110101
  2. MUCINEX [Concomitant]
     Indication: PNEUMONIA
     Route: 048
     Dates: start: 20110101
  3. ZANTAC [Suspect]
     Indication: DYSPEPSIA
     Dosage: 300 MG
     Route: 048
     Dates: start: 20110125
  4. BACTRIM DS [Concomitant]
     Indication: PNEUMONIA
     Route: 048
     Dates: start: 20110101

REACTIONS (1)
  - FEELING ABNORMAL [None]
